FAERS Safety Report 10880691 (Version 1)
Quarter: 2015Q1

REPORT INFORMATION
  Report Type: Spontaneous
  Country: IN (occurrence: None)
  Receive Date: 20150226
  Receipt Date: 20150226
  Transmission Date: 20150721
  Serious: Yes (Death, Other)
  Sender: FDA-Public Use
  Company Number: 2015HINLIT0175

PATIENT
  Age: 16 Year
  Sex: Female

DRUGS (12)
  1. CAPREOMYCIN [Suspect]
     Active Substance: CAPREOMYCIN
     Indication: TUBERCULOSIS
  2. MOXIFLOXACIN (MOXIFLOXACIN) [Suspect]
     Active Substance: MOXIFLOXACIN
     Indication: TUBERCULOSIS
  3. CYCLOSERINE. [Suspect]
     Active Substance: CYCLOSERINE
     Indication: TUBERCULOSIS
     Dates: start: 20111215
  4. AMOXICILLIN (AMOXICILLIN) [Suspect]
     Active Substance: AMOXICILLIN
     Indication: TUBERCULOSIS
     Dates: start: 20111215
  5. ISONIAZID (ISONIAZID) [Suspect]
     Active Substance: ISONIAZID
     Indication: TUBERCULOSIS
     Dates: start: 20111215
  6. EFAVIRENZ (EFAVIRENZ) UNKNOWN [Suspect]
     Active Substance: EFAVIRENZ
     Indication: ANTIRETROVIRAL THERAPY
  7. PYRAZINAMIDE. [Suspect]
     Active Substance: PYRAZINAMIDE
     Indication: TUBERCULOSIS
     Dates: start: 20111215
  8. CLAVULANIC ACID [Suspect]
     Active Substance: CLAVULANIC ACID
     Indication: TUBERCULOSIS
     Dates: start: 20111215
  9. ETHIONAMIDE (ETHIONAMIDE) [Suspect]
     Active Substance: ETHIONAMIDE
     Indication: TUBERCULOSIS
     Dates: start: 20111215
  10. LAMIVUDINE (LAMIVUDINE) UNKNOWN [Suspect]
     Active Substance: LAMIVUDINE
     Indication: ANTIRETROVIRAL THERAPY
  11. STAVUDINE (STAVUDINE) UNKNOWN [Suspect]
     Active Substance: STAVUDINE
     Indication: ANTIRETROVIRAL THERAPY
  12. PARA-AMINOSALICYLIC ACID [Suspect]
     Active Substance: AMINOSALICYLIC ACID
     Indication: TUBERCULOSIS
     Dates: start: 20111215

REACTIONS (4)
  - Psychotic disorder [None]
  - Gastrointestinal disorder [None]
  - Toxicity to various agents [None]
  - Tuberculoma of central nervous system [None]
